FAERS Safety Report 19956566 (Version 3)
Quarter: 2021Q4

REPORT INFORMATION
  Report Type: Report from Study
  Country: US (occurrence: US)
  Receive Date: 20211014
  Receipt Date: 20211129
  Transmission Date: 20220303
  Serious: Yes (Hospitalization)
  Sender: FDA-Public Use
  Company Number: US-BAYER-2021A230092

PATIENT
  Age: 71 Year
  Sex: Female

DRUGS (4)
  1. ADEMPAS [Suspect]
     Active Substance: RIOCIGUAT
     Indication: Pulmonary arterial hypertension
     Dosage: 0.5 MG, TID
     Route: 048
     Dates: start: 20150103
  2. ADEMPAS [Suspect]
     Active Substance: RIOCIGUAT
     Indication: Pulmonary arterial hypertension
     Dosage: 2.5 MG, QD
     Route: 048
     Dates: start: 20201019
  3. ADEMPAS [Suspect]
     Active Substance: RIOCIGUAT
     Indication: Pulmonary arterial hypertension
     Dosage: 2.5 MG, TID
     Route: 048
     Dates: start: 20190125, end: 20211111
  4. ADEMPAS [Suspect]
     Active Substance: RIOCIGUAT
     Indication: Pulmonary arterial hypertension
     Dosage: 0.5 MG, TID
     Dates: start: 20211117

REACTIONS (4)
  - Hospitalisation [Recovered/Resolved]
  - Inappropriate schedule of product administration [None]
  - Adverse event [None]
  - Incorrect product administration duration [None]

NARRATIVE: CASE EVENT DATE: 20201019
